FAERS Safety Report 9164261 (Version 1)
Quarter: 2013Q1

REPORT INFORMATION
  Report Type: Spontaneous
  Country: US (occurrence: US)
  Receive Date: 20130315
  Receipt Date: 20130315
  Transmission Date: 20140127
  Serious: No
  Sender: FDA-Public Use
  Company Number: US-BIOGENIDEC-2013BI023731

PATIENT
  Sex: Female

DRUGS (2)
  1. AVONEX [Suspect]
     Indication: MULTIPLE SCLEROSIS
     Route: 030
     Dates: start: 20051129, end: 20070115
  2. AVONEX [Suspect]
     Indication: MULTIPLE SCLEROSIS
     Route: 030
     Dates: start: 20080602

REACTIONS (1)
  - Adverse event [Unknown]
